FAERS Safety Report 4384468-5 (Version None)
Quarter: 2004Q2

REPORT INFORMATION
  Report Type: 
  Country: None (occurrence: None)
  Receive Date: 20040624
  Receipt Date: 20040525
  Transmission Date: 20050107
  Serious: Yes (Life-Threatening, Hospitalization, Disabling)
  Sender: FDA-Public Use
  Company Number: GB-MERCK-0405USA01826

PATIENT
  Age: 86 Year
  Sex: Male
  Weight: 74 kg

DRUGS (11)
  1. ALLOPURINOL [Concomitant]
     Route: 048
  2. ASPIRIN [Concomitant]
     Route: 048
  3. DOCUSATE SODIUM [Concomitant]
     Route: 048
  4. FLUOXETINE [Concomitant]
     Route: 048
  5. FUROSEMIDE [Concomitant]
     Route: 048
  6. LANSOPRAZOLE [Concomitant]
     Route: 048
  7. PRINIVIL [Suspect]
     Route: 048
     Dates: start: 20040203, end: 20040205
  8. METOPROLOL [Concomitant]
     Route: 048
  9. THIAMINE [Concomitant]
     Route: 048
  10. TRIMETHOPRIM [Suspect]
     Indication: URINARY TRACT INFECTION
     Route: 048
     Dates: start: 20040203, end: 20040205
  11. VITAMINS (UNSPECIFIED) [Concomitant]
     Route: 065

REACTIONS (3)
  - RESPIRATORY DISORDER [None]
  - SPEECH DISORDER [None]
  - TONGUE OEDEMA [None]
